FAERS Safety Report 9535467 (Version 1)
Quarter: 2013Q3

REPORT INFORMATION
  Report Type: Spontaneous
  Country: SE (occurrence: SE)
  Receive Date: 20130918
  Receipt Date: 20130918
  Transmission Date: 20140515
  Serious: Yes (Life-Threatening, Hospitalization)
  Sender: FDA-Public Use
  Company Number: SE-ACTAVIS-2013-16010

PATIENT
  Age: 43 Year
  Sex: Male

DRUGS (6)
  1. WARFARIN (UNKNOWN) [Suspect]
     Indication: THROMBOSIS PROPHYLAXIS
     Dosage: UNK
     Route: 065
  2. SILDENAFIL (UNKNOWN) [Suspect]
     Indication: PRODUCT USED FOR UNKNOWN INDICATION
     Dosage: UNK
     Route: 065
  3. BOSENTAN [Suspect]
     Indication: PULMONARY ARTERIAL HYPERTENSION
     Dosage: UNK
     Route: 065
  4. TREPROSTINIL [Suspect]
     Indication: PULMONARY ARTERIAL HYPERTENSION
     Dosage: UNK
     Route: 042
  5. TREPROSTINIL [Suspect]
     Dosage: 3.5 NG/KG/MIN
     Route: 058
  6. TREPROSTINIL [Suspect]
     Dosage: 10 NG/KG/MIN
     Route: 058

REACTIONS (1)
  - Intra-abdominal haemorrhage [Recovered/Resolved]
